FAERS Safety Report 10128736 (Version 1)
Quarter: 2014Q2

REPORT INFORMATION
  Report Type: Report from Study
  Country: US (occurrence: US)
  Receive Date: 20140428
  Receipt Date: 20140428
  Transmission Date: 20141212
  Serious: Yes (Other)
  Sender: FDA-Public Use
  Company Number: PHEH2014US007878

PATIENT
  Sex: Male

DRUGS (4)
  1. VALSARTAN [Suspect]
     Dosage: UNK UKN, UNK
  2. HYDROCHLOROTHIAZIDE,VALSARTAN [Suspect]
     Dosage: 1 DF, QD (VALS 160 MG, HCTZ 25 MG)
     Route: 048
  3. PENICILLIN G SODIUM [Suspect]
     Dosage: UNK UKN, UNK
  4. ANTIBIOTICS [Suspect]
     Dosage: UNK UKN, UNK

REACTIONS (3)
  - Urticaria [Recovering/Resolving]
  - Dyspnoea [Recovering/Resolving]
  - Pruritus [Recovering/Resolving]
